FAERS Safety Report 6128444-0 (Version None)
Quarter: 2009Q1

REPORT INFORMATION
  Report Type: 
  Country: None (occurrence: None)
  Receive Date: 20090323
  Receipt Date: 20090312
  Transmission Date: 20090719
  Serious: Yes (Hospitalization)
  Sender: FDA-Public Use
  Company Number: CA-ROCHE-612530

PATIENT
  Age: 39 Year
  Sex: Female
  Weight: 54.5 kg

DRUGS (4)
  1. CAPECITABINE [Suspect]
     Indication: COLORECTAL CANCER
     Route: 048
     Dates: start: 20080909
  2. BEVACIZUMAB [Suspect]
     Indication: COLORECTAL CANCER
     Route: 042
     Dates: start: 20080826
  3. OXALIPLATIN [Suspect]
     Indication: COLORECTAL CANCER
     Route: 042
     Dates: start: 20080909
  4. TRAMACET [Concomitant]
     Dosage: TRAMADOL HYDROCHLORIDE: 37.5 MG, PARACETAMOL: 325 MG
     Dates: start: 20081231, end: 20090109

REACTIONS (1)
  - WOUND DEHISCENCE [None]
